FAERS Safety Report 14923555 (Version 4)
Quarter: 2018Q2

REPORT INFORMATION
  Report Type: Spontaneous
  Country: JP (occurrence: JP)
  Receive Date: 20180522
  Receipt Date: 20180530
  Transmission Date: 20180711
  Serious: Yes (Other)
  Sender: FDA-Public Use
  Company Number: JP-PFIZER INC-2018203616

PATIENT
  Age: 67 Year
  Sex: Male
  Weight: 52 kg

DRUGS (10)
  1. IRINOTECAN HCL [Suspect]
     Active Substance: IRINOTECAN HYDROCHLORIDE
     Dosage: UNK, EVERY 3 WEEKS (DOSING INTERVAL OF EVERY THREE WEEKS)
  2. RAMUCIRUMAB [Suspect]
     Active Substance: RAMUCIRUMAB
     Dosage: 8 MG/KG, CYCLIC
  3. RAMUCIRUMAB [Suspect]
     Active Substance: RAMUCIRUMAB
     Dosage: UNK, EVERY 3 WEEKS (DOSING INTERVAL OF EVERY THREE WEEKS)
  4. CALCIUM FOLINATE [Suspect]
     Active Substance: LEUCOVORIN CALCIUM
     Indication: RECTAL CANCER METASTATIC
     Dosage: UNK, CYCLIC
  5. FLUOROURACIL. [Suspect]
     Active Substance: FLUOROURACIL
     Dosage: UNK, EVERY 3 WEEKS (DOSING INTERVAL OF EVERY THREE WEEKS)
  6. RAMUCIRUMAB [Suspect]
     Active Substance: RAMUCIRUMAB
     Indication: RECTAL CANCER METASTATIC
     Dosage: UNK, CYCLIC
  7. IRINOTECAN HCL [Suspect]
     Active Substance: IRINOTECAN HYDROCHLORIDE
     Dosage: 150 MG/M2, CYCLIC
  8. IRINOTECAN HCL [Suspect]
     Active Substance: IRINOTECAN HYDROCHLORIDE
     Indication: RECTAL CANCER METASTATIC
     Dosage: UNK, CYCLIC
  9. CALCIUM FOLINATE [Suspect]
     Active Substance: LEUCOVORIN CALCIUM
     Dosage: UNK, EVERY 3 WEEKS (DOSING INTERVAL OF EVERY THREE WEEKS)
  10. FLUOROURACIL. [Suspect]
     Active Substance: FLUOROURACIL
     Indication: RECTAL CANCER METASTATIC
     Dosage: UNK, CYCLIC

REACTIONS (3)
  - Febrile neutropenia [Unknown]
  - Epistaxis [Unknown]
  - Hypertension [Unknown]
